FAERS Safety Report 18504074 (Version 2)
Quarter: 2021Q1

REPORT INFORMATION
  Report Type: Spontaneous
  Country: US (occurrence: US)
  Receive Date: 20201113
  Receipt Date: 20210121
  Transmission Date: 20210419
  Serious: No
  Sender: FDA-Public Use
  Company Number: US-SOMERSET-2020-US-000358

PATIENT
  Age: 60 Year
  Sex: Male

DRUGS (5)
  1. LOSARTAN 25 MG [Concomitant]
     Active Substance: LOSARTAN
     Route: 048
     Dates: start: 2016
  2. DEXAMETHASONE SODIUM PHOSPHATE INJECTION USP [Suspect]
     Active Substance: DEXAMETHASONE SODIUM PHOSPHATE
     Route: 001
     Dates: start: 20200909, end: 20200909
  3. MONTELUKAST 10 MG [Concomitant]
     Active Substance: MONTELUKAST SODIUM
     Route: 048
     Dates: start: 2016
  4. QVAR REDIHALER 50 MCG [Concomitant]
     Route: 048
     Dates: start: 2016
  5. ATROVENT INHALER 12.9 G [Concomitant]
     Route: 048
     Dates: start: 2016

REACTIONS (2)
  - Facial paralysis [Recovered/Resolved]
  - Muscle twitching [Recovered/Resolved]

NARRATIVE: CASE EVENT DATE: 20200909
